FAERS Safety Report 13790370 (Version 1)
Quarter: 2017Q3

REPORT INFORMATION
  Report Type: Spontaneous
  Country: FR (occurrence: FR)
  Receive Date: 20170725
  Receipt Date: 20170725
  Transmission Date: 20171127
  Serious: Yes (Death, Hospitalization)
  Sender: FDA-Public Use
  Company Number: FR-TEVA-788991ROM

PATIENT
  Age: 76 Year
  Sex: Male

DRUGS (17)
  1. BLEOMYCINE BELLON 15 MG [Suspect]
     Active Substance: BLEOMYCIN SULFATE
     Indication: HODGKIN^S DISEASE
     Route: 042
     Dates: start: 20170112, end: 20170615
  2. ONDANSETRON [Concomitant]
     Active Substance: ONDANSETRON
  3. PARACETAMOL [Concomitant]
     Active Substance: ACETAMINOPHEN
     Dosage: STARTED FOR 5 MONTHS
  4. VELBE [Suspect]
     Active Substance: VINBLASTINE SULFATE
     Indication: HODGKIN^S DISEASE
     Dosage: 23 MILLIGRAM DAILY;
     Route: 042
     Dates: start: 20170112, end: 20170615
  5. ASPEGIC 100 MG [Concomitant]
     Dosage: STARTED FOR 5 MONTHS
  6. METHYLPREDNISOLONE. [Concomitant]
     Active Substance: METHYLPREDNISOLONE
  7. VALACICLOVIR [Concomitant]
     Active Substance: VALACYCLOVIR HYDROCHLORIDE
     Dosage: STARTED FOR 5 MONTHS
  8. DACARBAZINE MEDAC [Suspect]
     Active Substance: DACARBAZINE
     Indication: HODGKIN^S DISEASE
     Route: 042
     Dates: start: 20170112, end: 20170615
  9. GRANOCYTE [Concomitant]
     Active Substance: LENOGRASTIM
     Dates: start: 20170615, end: 20170619
  10. METOCLOPRAMIDE. [Concomitant]
     Active Substance: METOCLOPRAMIDE
     Dosage: STARTED FOR 5 MONTHS
  11. PROPRANOLOL [Suspect]
     Active Substance: PROPRANOLOL HYDROCHLORIDE
     Indication: HYPERTENSION
     Dosage: 160 MILLIGRAM DAILY;
     Route: 048
     Dates: end: 20170625
  12. LEVOTHYROX 37 MCG [Concomitant]
     Dosage: LONG STANDING TREATMENT
  13. DOXORUBICINE TEVA [Suspect]
     Active Substance: DOXORUBICIN
     Indication: HODGKIN^S DISEASE
     Route: 042
     Dates: start: 20170112, end: 20170615
  14. POLARAMINE [Concomitant]
     Active Substance: DEXCHLORPHENIRAMINE MALEATE
  15. APREPITANT NOS [Concomitant]
  16. ESOMEPRAZOLE [Concomitant]
     Active Substance: ESOMEPRAZOLE
     Dosage: STARTED FOR 5 MONTHS
  17. LERCANIDIPINE 10 MG [Concomitant]
     Dosage: STARTED FOR 5 MONTHS

REACTIONS (4)
  - Computerised tomogram thorax abnormal [Not Recovered/Not Resolved]
  - Acute respiratory failure [None]
  - Restrictive pulmonary disease [Fatal]
  - Lung disorder [Fatal]

NARRATIVE: CASE EVENT DATE: 201706
